FAERS Safety Report 8852096 (Version 2)
Quarter: 2013Q3

REPORT INFORMATION
  Report Type: Spontaneous
  Country: US (occurrence: US)
  Receive Date: 20121022
  Receipt Date: 20130912
  Transmission Date: 20140515
  Serious: Yes (Hospitalization, Disabling, Other)
  Sender: FDA-Public Use
  Company Number: US-009507513-1210USA006932

PATIENT
  Sex: Female

DRUGS (5)
  1. FOSAMAX [Suspect]
     Indication: HORMONE REPLACEMENT THERAPY
     Dosage: UNK
     Route: 048
  2. FOSAMAX [Suspect]
     Indication: POSTMENOPAUSE
  3. VITAMINS (UNSPECIFIED) [Concomitant]
     Dosage: UNK
     Dates: start: 1983
  4. CALCIUM (UNSPECIFIED) (+) MAGNESIUM (UNSPECIFIED) [Concomitant]
     Dosage: 600 MG, UNK
     Dates: start: 1983
  5. OMEPRAZOLE [Concomitant]
     Indication: GASTROOESOPHAGEAL REFLUX DISEASE
     Dosage: 40 MG, UNK
     Route: 048
     Dates: start: 1995

REACTIONS (11)
  - Femur fracture [Not Recovered/Not Resolved]
  - Intramedullary rod insertion [Unknown]
  - Low turnover osteopathy [Not Recovered/Not Resolved]
  - Medical device removal [Unknown]
  - Ankle fracture [Unknown]
  - Upper limb fracture [Unknown]
  - Hypertension [Unknown]
  - Fracture [Unknown]
  - Gastrointestinal disorder [Unknown]
  - Off label use [Unknown]
  - Arthralgia [Not Recovered/Not Resolved]
